FAERS Safety Report 14730478 (Version 1)
Quarter: 2018Q2

REPORT INFORMATION
  Report Type: Spontaneous
  Country: AU (occurrence: AU)
  Receive Date: 20180406
  Receipt Date: 20180406
  Transmission Date: 20180711
  Serious: Yes (Death, Hospitalization)
  Sender: FDA-Public Use
  Company Number: AU-WELLSTAT THERAPEUTICS CORPORATION-2045284

PATIENT
  Age: 62 Year
  Sex: Female
  Weight: 75 kg

DRUGS (2)
  1. VISTOGARD [Suspect]
     Active Substance: URIDINE TRIACETATE
     Indication: CHEMOTHERAPY TOXICITY ATTENUATION
     Route: 065
     Dates: start: 20180320, end: 20180324
  2. CAPECITABINE. [Suspect]
     Active Substance: CAPECITABINE
     Route: 048
     Dates: start: 20180317, end: 20180318

REACTIONS (1)
  - Encephalopathy [Fatal]

NARRATIVE: CASE EVENT DATE: 20180320
